FAERS Safety Report 5711157-4 (Version None)
Quarter: 2008Q2

REPORT INFORMATION
  Report Type: 
  Country: None (occurrence: None)
  Receive Date: 20080421
  Receipt Date: 20080410
  Transmission Date: 20081010
  Serious: Yes (Hospitalization)
  Sender: FDA-Public Use
  Company Number: NO-JNJFOC-20080201692

PATIENT
  Age: 27 Year
  Sex: Female

DRUGS (3)
  1. REMICADE [Suspect]
     Indication: CROHN'S DISEASE
     Route: 042
  2. PREDNISOLONE [Concomitant]
  3. MESALAMINE [Concomitant]

REACTIONS (4)
  - COLITIS ULCERATIVE [None]
  - DRUG EXPOSURE DURING PREGNANCY [None]
  - HOSPITALISATION [None]
  - HYPERTENSION [None]
